APPROVED DRUG PRODUCT: THIOTEPA
Active Ingredient: THIOTEPA
Strength: 100MG/VIAL
Dosage Form/Route: POWDER;INTRACAVITARY, INTRAVENOUS, INTRAVESICAL
Application: A216037 | Product #002 | TE Code: AP
Applicant: MEITHEAL PHARMACEUTICALS INC
Approved: Dec 26, 2023 | RLD: No | RS: No | Type: RX